FAERS Safety Report 23741065 (Version 1)
Quarter: 2024Q2

REPORT INFORMATION
  Report Type: Spontaneous
  Country: ES (occurrence: ES)
  Receive Date: 20240415
  Receipt Date: 20240415
  Transmission Date: 20240715
  Serious: Yes (Hospitalization)
  Sender: FDA-Public Use
  Company Number: None

PATIENT
  Age: 68 Year
  Sex: Female
  Weight: 68 kg

DRUGS (3)
  1. AMOXICILLIN\CLAVULANIC ACID [Interacting]
     Active Substance: AMOXICILLIN\CLAVULANIC ACID
     Indication: Tooth infection
     Dosage: AMOXICILINA + ?CIDO CLAVUL?NICO
     Route: 048
     Dates: start: 202401, end: 202401
  2. METRONIDAZOLE\SPIRAMYCIN [Interacting]
     Active Substance: METRONIDAZOLE\SPIRAMYCIN
     Indication: Tooth infection
     Route: 048
     Dates: start: 202401, end: 202401
  3. SINTROM [Interacting]
     Active Substance: ACENOCOUMAROL
     Indication: Cardiac valve prosthesis user
     Dosage: ACCORDING TO CONTROLS
     Route: 048
     Dates: start: 2015, end: 20240202

REACTIONS (3)
  - Blood loss anaemia [Recovering/Resolving]
  - International normalised ratio increased [Recovered/Resolved]
  - Gastric haemorrhage [Recovered/Resolved]

NARRATIVE: CASE EVENT DATE: 20240129
